FAERS Safety Report 7332982-2 (Version None)
Quarter: 2011Q1

REPORT INFORMATION
  Report Type: 
  Country: None (occurrence: None)
  Receive Date: 20110304
  Receipt Date: 20110223
  Transmission Date: 20110831
  Serious: Yes (Death, Other)
  Sender: FDA-Public Use
  Company Number: DE-TYCO HEALTHCARE/MALLINCKRODT-T201100506

PATIENT
  Sex: Female
  Weight: 93.42 kg

DRUGS (1)
  1. FENTANYL-100 [Suspect]
     Dosage: UNK

REACTIONS (3)
  - CARDIO-RESPIRATORY ARREST [None]
  - FALL [None]
  - TOXICITY TO VARIOUS AGENTS [None]
